FAERS Safety Report 7358261-5 (Version None)
Quarter: 2011Q1

REPORT INFORMATION
  Report Type: 
  Country: None (occurrence: None)
  Receive Date: 20110317
  Receipt Date: 20110317
  Transmission Date: 20110831
  Serious: Yes (Other)
  Sender: FDA-Public Use
  Company Number: None

PATIENT
  Sex: Female
  Weight: 43.5 kg

DRUGS (2)
  1. MORPHINE SULFATE [Suspect]
     Indication: PELVIC PAIN
     Dosage: 4 MG ONCE IV
     Route: 042
     Dates: start: 20110127, end: 20110127
  2. MORPHINE SULFATE [Suspect]
     Indication: ABDOMINAL PAIN
     Dosage: 4 MG ONCE IV
     Route: 042
     Dates: start: 20110127, end: 20110127

REACTIONS (3)
  - RASH [None]
  - DYSPNOEA [None]
  - INFUSION RELATED REACTION [None]
